FAERS Safety Report 10716144 (Version 1)
Quarter: 2015Q1

REPORT INFORMATION
  Report Type: Spontaneous
  Country: VN (occurrence: VN)
  Receive Date: 20150116
  Receipt Date: 20150116
  Transmission Date: 20150721
  Serious: Yes (Death)
  Sender: FDA-Public Use
  Company Number: VN-ROCHE-1520647

PATIENT
  Age: 49 Year
  Sex: Male

DRUGS (3)
  1. ATROPIN [Concomitant]
     Route: 042
     Dates: start: 20141022, end: 20141022
  2. ACTILYSE [Suspect]
     Active Substance: ALTEPLASE
     Indication: PRODUCT USED FOR UNKNOWN INDICATION
     Route: 042
     Dates: start: 20141022, end: 20141022
  3. NORADRENALIN [Concomitant]
     Active Substance: NOREPINEPHRINE\NOREPINEPHRINE BITARTRATE
     Route: 042
     Dates: start: 20141022, end: 20141022

REACTIONS (1)
  - Death [Fatal]
